FAERS Safety Report 21400597 (Version 3)
Quarter: 2022Q4

REPORT INFORMATION
  Report Type: Report from Study
  Country: CA (occurrence: CA)
  Receive Date: 20221003
  Receipt Date: 20221101
  Transmission Date: 20230112
  Serious: Yes (Hospitalization, Other)
  Sender: FDA-Public Use
  Company Number: CA-BRISTOL-MYERS SQUIBB COMPANY-2022-085830

PATIENT
  Age: 76 Year
  Sex: Male
  Weight: 55.5 kg

DRUGS (4)
  1. OPDIVO [Suspect]
     Active Substance: NIVOLUMAB
     Indication: Gastric cancer
     Route: 042
     Dates: start: 20220803
  2. AMLODIPINE [Concomitant]
     Active Substance: AMLODIPINE BESYLATE
     Indication: Product used for unknown indication
     Route: 065
  3. PANTOPRAZOLE [Concomitant]
     Active Substance: PANTOPRAZOLE
     Indication: Product used for unknown indication
     Route: 065
  4. HEPARIN [Concomitant]
     Active Substance: HEPARIN SODIUM
     Indication: Product used for unknown indication
     Route: 065

REACTIONS (21)
  - Dyspnoea [Unknown]
  - COVID-19 [Unknown]
  - Pulmonary embolism [Unknown]
  - Sensory disturbance [Unknown]
  - Pyrexia [Recovered/Resolved]
  - Fatigue [Unknown]
  - Dry mouth [Unknown]
  - Headache [Unknown]
  - Musculoskeletal chest pain [Unknown]
  - Hypoaesthesia [Unknown]
  - Appetite disorder [Unknown]
  - Somnolence [Unknown]
  - Stress [Unknown]
  - Anxiety [Unknown]
  - Malaise [Unknown]
  - Diarrhoea [Unknown]
  - Rhinalgia [Unknown]
  - Eye pain [Unknown]
  - Vomiting [Unknown]
  - Blood pressure systolic increased [Unknown]
  - Paraesthesia [Unknown]

NARRATIVE: CASE EVENT DATE: 20220813
